FAERS Safety Report 9471917 (Version 2)
Quarter: 2013Q3

REPORT INFORMATION
  Report Type: Spontaneous
  Country: US (occurrence: US)
  Receive Date: 20130823
  Receipt Date: 20130910
  Transmission Date: 20140515
  Serious: Yes (Other)
  Sender: FDA-Public Use
  Company Number: US-AMGEN-USASP2013057803

PATIENT
  Age: 65 Year
  Sex: Male

DRUGS (1)
  1. NPLATE [Suspect]
     Indication: THROMBOCYTOPENIA
     Dosage: 850 MUG, UNK
     Route: 065

REACTIONS (6)
  - Myelofibrosis [Unknown]
  - Therapeutic response decreased [Unknown]
  - Hyperplasia [Unknown]
  - Blood iron abnormal [Unknown]
  - Eosinophilia [Unknown]
  - Reticulin increased [Unknown]
